FAERS Safety Report 5854917-1 (Version None)
Quarter: 2008Q3

REPORT INFORMATION
  Report Type: 
  Country: None (occurrence: None)
  Receive Date: 20080822
  Receipt Date: 20080317
  Transmission Date: 20090109
  Serious: No
  Sender: FDA-Public Use
  Company Number: US-ABBOTT-08P-163-0443409-00

PATIENT
  Sex: Female
  Weight: 53.118 kg

DRUGS (1)
  1. SYNTHROID [Suspect]
     Indication: AUTOIMMUNE THYROIDITIS
     Route: 048
     Dates: start: 20070501

REACTIONS (4)
  - AGITATION [None]
  - IRRITABLE BOWEL SYNDROME [None]
  - RESTLESSNESS [None]
  - UNEVALUABLE EVENT [None]
